FAERS Safety Report 6885295-7 (Version None)
Quarter: 2010Q3

REPORT INFORMATION
  Report Type: 
  Country: None (occurrence: None)
  Receive Date: 20100729
  Receipt Date: 20100729
  Transmission Date: 20110219
  Serious: Yes (Hospitalization)
  Sender: FDA-Public Use
  Company Number: None

PATIENT
  Age: 59 Year
  Sex: Male

DRUGS (3)
  1. METHADONE HCL [Suspect]
     Indication: DEPRESSION
     Dosage: 10 MG TID PO
     Route: 048
     Dates: start: 20090715, end: 20100717
  2. METHADONE HCL [Suspect]
     Indication: PAIN
     Dosage: 10 MG TID PO
     Route: 048
     Dates: start: 20090715, end: 20100717
  3. CITALOPRAM HYDROBROMIDE [Suspect]
     Dosage: 80 MG EVERY DAY PO
     Route: 048
     Dates: start: 20100310, end: 20100717

REACTIONS (1)
  - ELECTROCARDIOGRAM QT PROLONGED [None]
